FAERS Safety Report 8476450-3 (Version None)
Quarter: 2012Q2

REPORT INFORMATION
  Report Type: 
  Country: None (occurrence: None)
  Receive Date: 20120628
  Receipt Date: 20120625
  Transmission Date: 20120825
  Serious: Yes (Other)
  Sender: FDA-Public Use
  Company Number: FR-ELI_LILLY_AND_COMPANY-FR201106001999

PATIENT
  Age: 66 Year
  Sex: Male
  Weight: 80 kg

DRUGS (4)
  1. CIALIS [Suspect]
     Dosage: 20 MG, UNK
     Route: 048
     Dates: start: 20110301, end: 20110301
  2. PRAVIGARD PAC (COPACKAGED) [Concomitant]
     Indication: PROPHYLAXIS
     Dosage: UNK
     Dates: start: 19940101
  3. PLAVIX [Concomitant]
     Indication: PROPHYLAXIS
     Dosage: UNK DF, UNK
     Dates: start: 19940101
  4. COVERAM ARG [Concomitant]
     Indication: PROPHYLAXIS
     Dosage: UNK
     Dates: start: 20100101

REACTIONS (1)
  - VISUAL IMPAIRMENT [None]
